FAERS Safety Report 4724277-8 (Version None)
Quarter: 2005Q3

REPORT INFORMATION
  Report Type: 
  Country: None (occurrence: None)
  Receive Date: 20050722
  Receipt Date: 20050712
  Transmission Date: 20060218
  Serious: Yes (Death, Other)
  Sender: FDA-Public Use
  Company Number: 2005078887

PATIENT
  Age: 88 Year
  Sex: Male

DRUGS (2)
  1. CARDURA XL [Suspect]
     Indication: BENIGN PROSTATIC HYPERPLASIA
     Dosage: 4 MG (4 MG, SINGLE, INTERVAL: EVERYDAY), ORAL
     Route: 048
     Dates: start: 20020101, end: 20050429
  2. MODURETIC 5-50 [Concomitant]

REACTIONS (3)
  - EMBOLISM [None]
  - LUNG DISORDER [None]
  - PNEUMONIA [None]
